FAERS Safety Report 12270289 (Version 3)
Quarter: 2016Q2

REPORT INFORMATION
  Report Type: Spontaneous
  Country: JP (occurrence: JP)
  Receive Date: 20160415
  Receipt Date: 20160510
  Transmission Date: 20160815
  Serious: Yes (Death)
  Sender: FDA-Public Use
  Company Number: JP-ROCHE-1727495

PATIENT
  Age: 61 Year
  Sex: Female
  Weight: 54 kg

DRUGS (4)
  1. AVASTIN [Suspect]
     Active Substance: BEVACIZUMAB
     Indication: OVARIAN CANCER
     Dosage: DOSAGE IS UNCERTAIN. ?TWO COURSES
     Route: 041
     Dates: start: 2016
  2. AVASTIN [Suspect]
     Active Substance: BEVACIZUMAB
     Indication: OVARIAN CANCER
     Dosage: 13 TIMES
     Route: 041
     Dates: start: 201602
  3. HYCAMTIN [Suspect]
     Active Substance: TOPOTECAN HYDROCHLORIDE
     Indication: OVARIAN CANCER
     Dosage: THE FRACTIONATION DOSE FREQUENCY IS UNCERTAIN. ?DOSE INTERVAL UNCERTAINTY
     Route: 041
     Dates: start: 20160215, end: 20160217
  4. HYCAMTIN [Suspect]
     Active Substance: TOPOTECAN HYDROCHLORIDE
     Dosage: DOASGE IS UNCERTAIN. 3 COURSES
     Route: 041
     Dates: start: 2016

REACTIONS (4)
  - Septic shock [Fatal]
  - Bone marrow failure [Unknown]
  - Gastrointestinal perforation [Fatal]
  - Ovarian cancer [Fatal]

NARRATIVE: CASE EVENT DATE: 201602
